FAERS Safety Report 9631516 (Version 1)
Quarter: 2013Q4

REPORT INFORMATION
  Report Type: Spontaneous
  Country: US (occurrence: US)
  Receive Date: 20131018
  Receipt Date: 20131018
  Transmission Date: 20140711
  Serious: No
  Sender: FDA-Public Use
  Company Number: US-PFIZER INC-2013296808

PATIENT
  Age: 50 Year
  Sex: Male

DRUGS (2)
  1. SUTENT [Suspect]
     Indication: HEPATIC NEOPLASM
     Dosage: 50 MG, CYCLIC (50MG DAILY, 4 WKS ON, 2 OFF)
     Route: 048
     Dates: start: 20131008
  2. OMEPRAZOLE [Concomitant]
     Dosage: UNK

REACTIONS (4)
  - Alopecia [Unknown]
  - Fatigue [Unknown]
  - Decreased appetite [Unknown]
  - Off label use [Unknown]
